FAERS Safety Report 24764271 (Version 1)
Quarter: 2024Q4

REPORT INFORMATION
  Report Type: Spontaneous
  Country: CA (occurrence: CA)
  Receive Date: 20241223
  Receipt Date: 20241223
  Transmission Date: 20250115
  Serious: Yes (Other)
  Sender: DR REDDYS
  Company Number: None

PATIENT
  Age: 68 Year

DRUGS (11)
  1. AZACITIDINE [Suspect]
     Active Substance: AZACITIDINE
     Indication: Acute myeloid leukaemia
  2. AZACITIDINE [Suspect]
     Active Substance: AZACITIDINE
  3. AZACITIDINE [Suspect]
     Active Substance: AZACITIDINE
  4. AZACITIDINE [Suspect]
     Active Substance: AZACITIDINE
  5. AZACITIDINE [Suspect]
     Active Substance: AZACITIDINE
  6. VENETOCLAX [Suspect]
     Active Substance: VENETOCLAX
     Indication: Acute myeloid leukaemia
  7. VENETOCLAX [Suspect]
     Active Substance: VENETOCLAX
  8. VENETOCLAX [Suspect]
     Active Substance: VENETOCLAX
  9. VENETOCLAX [Suspect]
     Active Substance: VENETOCLAX
  10. VENETOCLAX [Suspect]
     Active Substance: VENETOCLAX
  11. VENETOCLAX [Suspect]
     Active Substance: VENETOCLAX

REACTIONS (1)
  - Platelet disorder [Recovered/Resolved]
